FAERS Safety Report 8271103-9 (Version None)
Quarter: 2012Q1

REPORT INFORMATION
  Report Type: 
  Country: None (occurrence: None)
  Receive Date: 20120310
  Receipt Date: 20120130
  Transmission Date: 20120608
  Serious: Yes (Hospitalization, Other)
  Sender: FDA-Public Use
  Company Number: PHEH2012US003035

PATIENT
  Sex: Male

DRUGS (2)
  1. FANAPT [Suspect]
     Dosage: 2 MG, BID, ORAL
     Route: 048
     Dates: start: 20120125
  2. CYMBALTA [Concomitant]

REACTIONS (1)
  - DYSTONIA [None]
